FAERS Safety Report 9724836 (Version 1)
Quarter: 2013Q4

REPORT INFORMATION
  Report Type: Spontaneous
  Country: TW (occurrence: TW)
  Receive Date: 20131202
  Receipt Date: 20131202
  Transmission Date: 20140711
  Serious: Yes (Other)
  Sender: FDA-Public Use
  Company Number: TW-MYLANLABS-2013S1026486

PATIENT
  Age: 71 Year
  Sex: Male

DRUGS (6)
  1. WARFARIN [Suspect]
     Indication: ATRIAL FIBRILLATION
     Dosage: ABOUT 7MG DAILY
     Route: 065
  2. VERAPAMIL [Concomitant]
     Indication: ATRIAL FIBRILLATION
     Route: 065
  3. CLOPIDOGREL [Concomitant]
     Route: 065
  4. ASPIRIN [Concomitant]
     Route: 065
  5. PREDNISOLONE [Concomitant]
     Indication: TEMPORAL ARTERITIS
     Dosage: HIGH DOSE
     Route: 065
  6. IRBESARTAN [Concomitant]
     Route: 065

REACTIONS (3)
  - Arteriosclerosis coronary artery [Unknown]
  - Vascular calcification [Unknown]
  - Contusion [Unknown]
